FAERS Safety Report 18888905 (Version 6)
Quarter: 2021Q2

REPORT INFORMATION
  Report Type: Spontaneous
  Country: US (occurrence: US)
  Receive Date: 20210212
  Receipt Date: 20210406
  Transmission Date: 20210717
  Serious: Yes (Hospitalization)
  Sender: FDA-Public Use
  Company Number: US-CELGENEUS-USA-20210202025

PATIENT
  Age: 20 Year
  Sex: Male
  Weight: 98 kg

DRUGS (12)
  1. AZACITIDINE. [Suspect]
     Active Substance: AZACITIDINE
     Indication: NEOPLASM MALIGNANT
     Route: 041
     Dates: start: 20200813, end: 20200924
  2. VENETOCLAX. [Suspect]
     Active Substance: VENETOCLAX
     Indication: NEOPLASM MALIGNANT
     Dosage: 100 MILLIGRAM
     Route: 048
     Dates: start: 20201201, end: 20201201
  3. VENETOCLAX. [Suspect]
     Active Substance: VENETOCLAX
     Dosage: 200 MILLIGRAM
     Route: 048
     Dates: start: 20201202, end: 20201202
  4. DECITABINE. [Suspect]
     Active Substance: DECITABINE
     Indication: MYELODYSPLASTIC SYNDROME
     Dosage: 20 MILLIGRAM/SQ. METER
     Route: 041
     Dates: start: 20210116
  5. VALCYTE [Concomitant]
     Active Substance: VALGANCICLOVIR HYDROCHLORIDE
     Indication: ANTIVIRAL PROPHYLAXIS
     Dosage: 900 MILLIGRAM
     Route: 048
     Dates: start: 20200923, end: 20210225
  6. AZACITIDINE. [Suspect]
     Active Substance: AZACITIDINE
     Route: 041
     Dates: start: 20201102, end: 20201105
  7. VENETOCLAX. [Suspect]
     Active Substance: VENETOCLAX
     Dosage: 400 MILLIGRAM
     Route: 048
     Dates: start: 20201203, end: 20210127
  8. DECITABINE. [Suspect]
     Active Substance: DECITABINE
     Indication: NEOPLASM MALIGNANT
     Dosage: 20 MILLIGRAM/SQ. METER
     Route: 041
     Dates: start: 20210112, end: 20210116
  9. SEPTRA [Concomitant]
     Active Substance: SULFAMETHOXAZOLE\TRIMETHOPRIM
     Indication: INFECTION PROPHYLAXIS
     Dosage: 320 MILLIGRAM
     Route: 048
     Dates: start: 20201124, end: 20210221
  10. AZACITIDINE. [Suspect]
     Active Substance: AZACITIDINE
     Dosage: 75 MILLIGRAM/SQ. METER
     Route: 041
     Dates: start: 20201204, end: 20201209
  11. VENETOCLAX. [Suspect]
     Active Substance: VENETOCLAX
     Dosage: 400 MILLIGRAM
     Route: 048
     Dates: start: 20210211
  12. FLUCONAZOLE. [Concomitant]
     Active Substance: FLUCONAZOLE
     Indication: PNEUMONIA FUNGAL
     Dosage: 400 MILLIGRAM
     Route: 048
     Dates: start: 20201125

REACTIONS (2)
  - Colitis [Recovered/Resolved]
  - Febrile neutropenia [Recovered/Resolved]

NARRATIVE: CASE EVENT DATE: 20210127
